FAERS Safety Report 15210838 (Version 2)
Quarter: 2018Q4

REPORT INFORMATION
  Report Type: Report from Study
  Country: FR (occurrence: FR)
  Receive Date: 20180728
  Receipt Date: 20180730
  Transmission Date: 20190204
  Serious: Yes (Life-Threatening, Other)
  Sender: FDA-Public Use
  Company Number: FR-ACCORD-070036

PATIENT
  Sex: Male

DRUGS (16)
  1. METHOTREXATE. [Suspect]
     Active Substance: METHOTREXATE
     Indication: ACUTE LYMPHOCYTIC LEUKAEMIA
     Dosage: 15 MG, UNK
     Route: 037
     Dates: start: 20170601, end: 20170612
  2. VINCRISTINE [Suspect]
     Active Substance: VINCRISTINE
     Indication: ACUTE LYMPHOCYTIC LEUKAEMIA
     Dosage: 2 MG, UNK
     Route: 042
     Dates: start: 20170527, end: 20170617
  3. ZOPHREN [Concomitant]
     Active Substance: ONDANSETRON
     Indication: NAUSEA
  4. BACTRIM [Concomitant]
     Active Substance: SULFAMETHOXAZOLE\TRIMETHOPRIM
     Indication: ANTI-INFECTIVE THERAPY
  5. GAVISCON [Concomitant]
     Active Substance: ALUMINUM HYDROXIDE\MAGNESIUM CARBONATE
     Indication: GASTROOESOPHAGEAL REFLUX DISEASE
  6. CACIT D3 [Concomitant]
     Active Substance: CALCIUM\CHOLECALCIFEROL
     Indication: MINERAL SUPPLEMENTATION
  7. DAUNORUBICIN [Suspect]
     Active Substance: DAUNORUBICIN
     Indication: ACUTE LYMPHOCYTIC LEUKAEMIA
     Dosage: 50 MG, UNK
     Dates: start: 20170527, end: 20170617
  8. LOXEN (NICARDIPINE HYDROCHLORIDE) [Concomitant]
     Active Substance: NICARDIPINE HYDROCHLORIDE
     Indication: HYPERTENSION
  9. PARACETAMOL [Concomitant]
     Active Substance: ACETAMINOPHEN
     Indication: PAIN
  10. PEGASPARGASE [Suspect]
     Active Substance: PEGASPARGASE
     Indication: ACUTE LYMPHOCYTIC LEUKAEMIA
     Dosage: 4150 IU, UNK
     Route: 042
     Dates: start: 20170531, end: 20170531
  11. SOLUPRED (PREDNISOLONE SODIUM METAZOATE) [Suspect]
     Active Substance: PREDNISOLONE SODIUM METAZOATE
     Indication: ACUTE LYMPHOCYTIC LEUKAEMIA
     Dosage: 1000 MG, UNK
     Route: 048
     Dates: start: 20170527, end: 20170617
  12. ARACYTIN [Suspect]
     Active Substance: CYTARABINE
     Indication: ACUTE LYMPHOCYTIC LEUKAEMIA
     Dosage: 30 MG, UNK
     Route: 037
     Dates: start: 20170601, end: 20170612
  13. VOGALEN [Concomitant]
     Indication: NAUSEA
  14. LAROXYL [Concomitant]
     Active Substance: AMITRIPTYLINE HYDROCHLORIDE
     Indication: LAXATIVE SUPPORTIVE CARE
  15. HYDROCORTISONE. [Suspect]
     Active Substance: HYDROCORTISONE
     Indication: ACUTE LYMPHOCYTIC LEUKAEMIA
     Dosage: 15 MG, UNK
     Route: 037
     Dates: start: 20170601, end: 20170612
  16. PHLOROGLUCINOL/TRIMETHYLPHLOROGLUCINOL [Concomitant]
     Indication: PAIN

REACTIONS (1)
  - Blood fibrinogen decreased [Recovered/Resolved]

NARRATIVE: CASE EVENT DATE: 20170616
